FAERS Safety Report 8811545 (Version 1)
Quarter: 2012Q4

REPORT INFORMATION
  Report Type: 
  Country: US (occurrence: US)
  Receive Date: 20120927
  Receipt Date: 20120927
  Transmission Date: 20130627
  Serious: Yes (Other)
  Sender: FDA-Public Use
  Company Number: US-PFIZER INC-2012185909

PATIENT
  Age: 53 Year
  Sex: Male

DRUGS (1)
  1. PROPANOLOL HCL [Suspect]
     Indication: HYPERTENSION
     Dosage: 10 mg, 3x/day
     Route: 048
     Dates: start: 20110916, end: 20111007

REACTIONS (3)
  - Wheezing [Unknown]
  - Drug hypersensitivity [Unknown]
  - Rash [Recovered/Resolved]
